FAERS Safety Report 17363165 (Version 1)
Quarter: 2020Q1

REPORT INFORMATION
  Report Type: Spontaneous
  Country: US (occurrence: US)
  Receive Date: 20200203
  Receipt Date: 20200203
  Transmission Date: 20200409
  Serious: No
  Sender: FDA-Public Use
  Company Number: US-TEVA-2020-US-1173963

PATIENT
  Sex: Male

DRUGS (1)
  1. BUPRENORPHINE TRANSDERMAL SYSTEM [Suspect]
     Active Substance: BUPRENORPHINE
     Indication: NEUROPATHY PERIPHERAL
     Dosage: FORM STRENGTH: 15 MCG/HR
     Route: 062
     Dates: start: 20200115

REACTIONS (4)
  - Product adhesion issue [Unknown]
  - Application site erosion [Unknown]
  - Product substitution issue [Unknown]
  - Application site urticaria [Unknown]
